FAERS Safety Report 7372044-1 (Version None)
Quarter: 2011Q1

REPORT INFORMATION
  Report Type: 
  Country: None (occurrence: None)
  Receive Date: 20110324
  Receipt Date: 20110318
  Transmission Date: 20110831
  Serious: Yes (Death, Hospitalization)
  Sender: FDA-Public Use
  Company Number: PHHY2011US21607

PATIENT
  Sex: Female
  Weight: 107 kg

DRUGS (2)
  1. EXJADE [Suspect]
     Indication: SCHISTOSOMIASIS
     Dosage: UNK
     Route: 048
     Dates: start: 20100405, end: 20100505
  2. EXJADE [Suspect]
     Dosage: UNK
     Dates: end: 20100701

REACTIONS (11)
  - DIARRHOEA [None]
  - PERIPHERAL VASCULAR DISORDER [None]
  - SEPSIS [None]
  - CHRONIC OBSTRUCTIVE PULMONARY DISEASE [None]
  - HYPERTENSION [None]
  - THROMBOCYTOPENIA [None]
  - ACUTE MYELOID LEUKAEMIA [None]
  - MELAENA [None]
  - FATIGUE [None]
  - GASTROINTESTINAL HAEMORRHAGE [None]
  - MYELODYSPLASTIC SYNDROME TRANSFORMATION [None]
